FAERS Safety Report 4348004-1 (Version None)
Quarter: 2004Q1

REPORT INFORMATION
  Report Type: 
  Country: None (occurrence: None)
  Receive Date: 20040325
  Receipt Date: 20040216
  Transmission Date: 20041129
  Serious: No
  Sender: FDA-Public Use
  Company Number: USA030332364

PATIENT
  Age: 54 Year
  Sex: Female
  Weight: 44 kg

DRUGS (9)
  1. FORTEO [Suspect]
     Indication: OSTEOPOROSIS
     Dosage: 20 UG/DAY
     Dates: start: 20030324
  2. FOLIC ACID [Concomitant]
  3. PREDNISONE [Concomitant]
  4. PREVACID [Concomitant]
  5. VITAMIN D [Concomitant]
  6. XANAX [Concomitant]
  7. IMURAN [Concomitant]
  8. FLAGYL [Concomitant]
  9. LEXAPRO [Concomitant]

REACTIONS (12)
  - ABDOMINAL DISCOMFORT [None]
  - ABDOMINAL DISTENSION [None]
  - DYSPEPSIA [None]
  - ECZEMA [None]
  - ERYTHEMA [None]
  - FAECES PALE [None]
  - INJECTION SITE BURNING [None]
  - INJECTION SITE ERYTHEMA [None]
  - INJECTION SITE REACTION [None]
  - INJECTION SITE URTICARIA [None]
  - RASH [None]
  - SWELLING FACE [None]
